FAERS Safety Report 8400675-6 (Version None)
Quarter: 2012Q2

REPORT INFORMATION
  Report Type: 
  Country: None (occurrence: None)
  Receive Date: 20120531
  Receipt Date: 20120525
  Transmission Date: 20120825
  Serious: No
  Sender: FDA-Public Use
  Company Number: US-PFIZER INC-2012096712

PATIENT
  Sex: Male

DRUGS (1)
  1. NEURONTIN [Suspect]
     Dosage: 300 MG, 1 CAPSULE, PO
     Route: 048
     Dates: start: 20120501

REACTIONS (2)
  - NECK INJURY [None]
  - BACK INJURY [None]
